FAERS Safety Report 7954879-7 (Version None)
Quarter: 2011Q4

REPORT INFORMATION
  Report Type: 
  Country: None (occurrence: None)
  Receive Date: 20111202
  Receipt Date: 20111122
  Transmission Date: 20120403
  Serious: Yes (Other)
  Sender: FDA-Public Use
  Company Number: JP-MERCK-1111USA01611

PATIENT
  Age: 61 Year
  Sex: Male

DRUGS (5)
  1. VALPROIC ACID [Concomitant]
     Route: 065
  2. BETAMETHASONE [Concomitant]
     Route: 065
  3. TEMOZOLOMIDE [Concomitant]
     Route: 065
  4. PROPRANOLOL HYDROCHLORIDE [Concomitant]
     Route: 065
  5. PEPCID [Suspect]
     Route: 048

REACTIONS (1)
  - HEPATITIS ACUTE [None]
